FAERS Safety Report 4606332-6 (Version None)
Quarter: 2005Q2

REPORT INFORMATION
  Report Type: 
  Country: None (occurrence: None)
  Receive Date: 20050303
  Receipt Date: 20050107
  Transmission Date: 20051028
  Serious: No
  Sender: FDA-Public Use
  Company Number: 200510030BWH

PATIENT
  Age: 78 Year
  Sex: Male

DRUGS (2)
  1. LEVITRA [Suspect]
     Indication: ERECTILE DYSFUNCTION
     Dosage: 20 + 30 MG, TOTAL DAILY, ORAL
     Route: 048
  2. DIAZEPAM [Concomitant]

REACTIONS (2)
  - ERECTILE DYSFUNCTION [None]
  - INTENTIONAL MISUSE [None]
